FAERS Safety Report 4872042-3 (Version None)
Quarter: 2005Q4

REPORT INFORMATION
  Report Type: 
  Country: None (occurrence: None)
  Receive Date: 20051230
  Receipt Date: 20051223
  Transmission Date: 20060501
  Serious: Yes (Hospitalization, Disabling)
  Sender: FDA-Public Use
  Company Number: 200514451GDS

PATIENT
  Age: 80 Year
  Sex: Female
  Weight: 95 kg

DRUGS (9)
  1. CIPROFLOXACIN [Suspect]
     Indication: URINE ANALYSIS ABNORMAL
     Dosage: ORAL
     Route: 048
     Dates: start: 20051001
  2. ATORVASTATIN [Suspect]
     Indication: HYPERLIPIDAEMIA
     Dosage: 20 MG, TOTAL DAILY, ORAL
     Route: 048
     Dates: start: 20051001
  3. MIRTAZAPINE [Suspect]
     Dosage: ORAL
     Route: 048
  4. FUROSEMIDE [Concomitant]
  5. PHENPROCOUMON [Concomitant]
  6. INDAPAMIDE [Concomitant]
  7. PERINDOPRIL [Concomitant]
  8. SOTALOL HCL [Concomitant]
  9. DIGOXIN [Concomitant]

REACTIONS (1)
  - RHABDOMYOLYSIS [None]
